FAERS Safety Report 14879532 (Version 1)
Quarter: 2018Q2

REPORT INFORMATION
  Report Type: Spontaneous
  Country: US (occurrence: US)
  Receive Date: 20180425
  Receipt Date: 20180425
  Transmission Date: 20180711
  Serious: No
  Sender: FDA-Public Use
  Company Number: None

PATIENT
  Age: 62 Year
  Sex: Male

DRUGS (1)
  1. HARVONI [Suspect]
     Active Substance: LEDIPASVIR\SOFOSBUVIR

REACTIONS (6)
  - Vomiting [None]
  - Dehydration [None]
  - Back pain [None]
  - Nausea [None]
  - Drug dose omission [None]
  - Insomnia [None]

NARRATIVE: CASE EVENT DATE: 20180425
